FAERS Safety Report 9252536 (Version 1)
Quarter: 2013Q1

REPORT INFORMATION
  Report Type: Spontaneous
  Country: US (occurrence: None)
  Receive Date: 20130305
  Receipt Date: 20130305
  Transmission Date: 20140127
  Serious: Yes (Hospitalization, Other)
  Sender: FDA-Public Use
  Company Number: 163-21880-12052379

PATIENT
  Age: 83 Year
  Sex: Male
  Weight: 66.68 kg

DRUGS (22)
  1. REVLIMID [Suspect]
     Indication: PLASMA CELL MYELOMA
     Dosage: 25 MG, 1 IN 1 D, PO
     Route: 048
     Dates: start: 200812
  2. AMLODIPINE (AMLODIPINE) (UNKNOWN) [Concomitant]
     Dosage: 5 MG, PRN, UNK
  3. HCTZ (HYDROCHLOROTHIAZIDE) (UNKNOWN) [Concomitant]
     Dosage: 25 MG, DAILY, UNK
  4. ISOSORBIDE (ISOSORBIDE) (UNKNOWN) [Concomitant]
     Dosage: 60 MG, UNK
  5. LISINOPRIL (LISINOPRIL) (UNKNOWN) [Concomitant]
     Dosage: 30 MG, UNK
  6. METOPROLOL (METOPROLOL) (UNKNOWN) [Concomitant]
     Dosage: 100 MG, UNK
  7. NOXLINE (ALL OTHER THERAPEUTIC  PRODUCTS) (UNKNOWN) [Concomitant]
  8. AHCG (ALL OTHER THERAPEUTIC PRODUCTS) (UNKNOWN) [Concomitant]
  9. ALGA (ALL OTHER THERAPEUTIC PRODUCTS) (UNKNOWN) [Concomitant]
  10. ALCITO (ALL OTHER THERAPEUTIC PRODUCTS) (UNKNOWN) [Concomitant]
  11. VITAMIN C [Concomitant]
  12. VITAMIN D3 (COLECALCIFEROL) (UNKNOWN) [Concomitant]
  13. VITAMIN E (TOCOPHEROL) (UNKNOWN) [Concomitant]
  14. VITAMIN B COMPLEX (B-KOMPLEX ^LECIVA^) (UNKNOWN) [Concomitant]
  15. COQ10 (UBIDECARENONE) (UNKNOWN) [Concomitant]
  16. AV MED (ALL OTHER THERAPEUTIC PRODUCTS) (UNKNOWN) [Concomitant]
  17. DP6 (ALL OTHER THERAPEUTIC PRODUCTS) (UNKNOWN) [Concomitant]
  18. CURMOMIN (ALL OTHER THERAPEUTIC PRODUCTS) (UNKNOWN) [Concomitant]
  19. BOSWELLEN (ALL OTHER THERAPEUTIC PRODUCTS) (UNKNOWN) [Concomitant]
  20. OSHWOGONDA (ALL OTHER THERAPEUTIC PRODUCTS) (UNKNOWN) [Concomitant]
  21. FISH OIL (FISH OIL) (UNKNOWN) [Concomitant]
  22. MTV (MTV) (UNKNOWN) [Concomitant]

REACTIONS (3)
  - Myocardial infarction [None]
  - Rectal haemorrhage [None]
  - Diplopia [None]
